FAERS Safety Report 7584036-8 (Version None)
Quarter: 2011Q2

REPORT INFORMATION
  Report Type: 
  Country: None (occurrence: None)
  Receive Date: 20110630
  Receipt Date: 20110620
  Transmission Date: 20111010
  Serious: Yes (Death)
  Sender: FDA-Public Use
  Company Number: CA-JNJFOC-20110610068

PATIENT
  Sex: Male

DRUGS (6)
  1. LANSOPRAZOLE [Concomitant]
  2. LOPRESSOR SR [Concomitant]
  3. VASOTEC [Concomitant]
  4. FERROUS GLUCONATE [Concomitant]
  5. REMICADE [Suspect]
     Indication: ANKYLOSING SPONDYLITIS
     Route: 042
     Dates: start: 20101201, end: 20110607
  6. TRAZODONE HCL [Concomitant]

REACTIONS (2)
  - DEATH [None]
  - DYSPNOEA [None]
